FAERS Safety Report 6121116-8 (Version None)
Quarter: 2009Q1

REPORT INFORMATION
  Report Type: 
  Country: None (occurrence: None)
  Receive Date: 20090317
  Receipt Date: 20090313
  Transmission Date: 20090719
  Serious: Yes (Other)
  Sender: FDA-Public Use
  Company Number: A0771011A

PATIENT
  Age: 14 Year
  Sex: Female
  Weight: 50 kg

DRUGS (2)
  1. LANVIS [Suspect]
     Route: 065
     Dates: start: 20060401, end: 20070401
  2. BLOOD TRANSFUSION [Concomitant]

REACTIONS (3)
  - HAEMOCHROMATOSIS [None]
  - HEPATIC NEOPLASM [None]
  - HEPATOCELLULAR INJURY [None]
